FAERS Safety Report 24916974 (Version 1)
Quarter: 2025Q1

REPORT INFORMATION
  Report Type: Spontaneous
  Country: US (occurrence: None)
  Receive Date: 20250201
  Receipt Date: 20250201
  Transmission Date: 20250408
  Serious: Yes (Hospitalization)
  Sender: FDA-CTU
  Company Number: None

PATIENT
  Age: 70 Year
  Sex: Female
  Weight: 49.9 kg

DRUGS (4)
  1. FLUOROURACIL [Suspect]
     Active Substance: FLUOROURACIL
     Dates: end: 20241219
  2. LEUCOVORIN CALCIUM [Suspect]
     Active Substance: LEUCOVORIN CALCIUM
     Dates: end: 20241217
  3. NIVOLUMAB [Suspect]
     Active Substance: NIVOLUMAB
     Dates: end: 20241217
  4. ELOXATIN [Suspect]
     Active Substance: OXALIPLATIN
     Dates: end: 20241217

REACTIONS (4)
  - Fall [None]
  - Renal impairment [None]
  - Acute kidney injury [None]
  - Dehydration [None]

NARRATIVE: CASE EVENT DATE: 20241219
